FAERS Safety Report 11376936 (Version 1)
Quarter: 2015Q3

REPORT INFORMATION
  Report Type: Report from Study
  Country: NL (occurrence: NL)
  Receive Date: 20150813
  Receipt Date: 20150813
  Transmission Date: 20151125
  Serious: Yes (Death)
  Sender: FDA-Public Use
  Company Number: NL-ABBVIE-15P-114-1443357-00

PATIENT
  Age: 71 Year
  Sex: Male
  Weight: 85 kg

DRUGS (1)
  1. LUCRIN DEPOT [Suspect]
     Active Substance: LEUPROLIDE ACETATE
     Indication: PROSTATE CANCER
     Route: 058
     Dates: start: 20140219, end: 20150226

REACTIONS (1)
  - Death [Fatal]

NARRATIVE: CASE EVENT DATE: 20150730
